FAERS Safety Report 11082425 (Version 3)
Quarter: 2015Q2

REPORT INFORMATION
  Report Type: Report from Study
  Country: CA (occurrence: CA)
  Receive Date: 20150501
  Receipt Date: 20150527
  Transmission Date: 20150821
  Serious: Yes (Hospitalization, Other)
  Sender: FDA-Public Use
  Company Number: PHHY2015CA020973

PATIENT
  Age: 62 Year
  Sex: Male

DRUGS (2)
  1. SANDOSTATIN [Suspect]
     Active Substance: OCTREOTIDE ACETATE
     Indication: COLON CANCER
     Dosage: UNKNOWN DOSAGE, TID (TO CONTINUE 2 WEEKS POST FIRST LAR ADMINISTRATION)
     Route: 058
     Dates: start: 20150110, end: 201502
  2. SANDOSTATIN LAR DEPOT [Suspect]
     Active Substance: OCTREOTIDE ACETATE
     Indication: COLON CANCER
     Dosage: 20 MG, EVERY 4 WEEKS
     Route: 030
     Dates: start: 20150128

REACTIONS (5)
  - Peripheral swelling [Unknown]
  - Weight decreased [Unknown]
  - Asthenia [Unknown]
  - Blood pressure decreased [Unknown]
  - Off label use [Unknown]

NARRATIVE: CASE EVENT DATE: 20150421
